FAERS Safety Report 6761507-5 (Version None)
Quarter: 2010Q2

REPORT INFORMATION
  Report Type: 
  Country: None (occurrence: None)
  Receive Date: 20100607
  Receipt Date: 20100526
  Transmission Date: 20101027
  Serious: Yes (Death, Hospitalization, Other)
  Sender: FDA-Public Use
  Company Number: 2009AC000309

PATIENT
  Age: 45 Year
  Sex: Female

DRUGS (8)
  1. DIGOXIN [Suspect]
     Dosage: 0.125 MG;PO
     Route: 048
     Dates: start: 20030801, end: 20070601
  2. SYMBYAX [Concomitant]
  3. TOPRAL [Concomitant]
  4. AMIODARONE [Concomitant]
  5. LASIX [Concomitant]
  6. VANCOMYCIN [Concomitant]
  7. CLINDAMYCIN [Concomitant]
  8. INSULIN [Concomitant]

REACTIONS (17)
  - ARTERIAL INSUFFICIENCY [None]
  - ATRIOVENTRICULAR BLOCK FIRST DEGREE [None]
  - BRADYCARDIA [None]
  - BUNDLE BRANCH BLOCK LEFT [None]
  - CARDIAC FAILURE CONGESTIVE [None]
  - CELLULITIS [None]
  - DEPRESSION [None]
  - ECONOMIC PROBLEM [None]
  - EYE HAEMORRHAGE [None]
  - INJURY [None]
  - ISCHAEMIC CARDIOMYOPATHY [None]
  - PERIPHERAL ARTERIAL OCCLUSIVE DISEASE [None]
  - PERIPHERAL VASCULAR DISORDER [None]
  - RENAL FAILURE CHRONIC [None]
  - SICK SINUS SYNDROME [None]
  - SKIN ULCER [None]
  - UNEVALUABLE EVENT [None]
